FAERS Safety Report 10441865 (Version 2)
Quarter: 2014Q3

REPORT INFORMATION
  Report Type: Spontaneous
  Country: DE (occurrence: DE)
  Receive Date: 20140909
  Receipt Date: 20140909
  Transmission Date: 20150326
  Serious: Yes (Other)
  Sender: FDA-Public Use
  Company Number: DE-PFIZER INC-2014248006

PATIENT
  Sex: Female

DRUGS (1)
  1. PANTOPRAZOLE [Suspect]
     Active Substance: PANTOPRAZOLE SODIUM
     Dosage: 20-40 MG, QD
     Route: 065

REACTIONS (4)
  - Secretion discharge [Not Recovered/Not Resolved]
  - Dysphagia [Not Recovered/Not Resolved]
  - Vitamin D deficiency [Unknown]
  - Diabetes mellitus [Not Recovered/Not Resolved]
